FAERS Safety Report 22877446 (Version 7)
Quarter: 2023Q4

REPORT INFORMATION
  Report Type: Report from Study
  Country: US (occurrence: US)
  Receive Date: 20230829
  Receipt Date: 20231024
  Transmission Date: 20240110
  Serious: Yes (Hospitalization)
  Sender: FDA-Public Use
  Company Number: US-ARGENX-2023-ARGX-US002849

PATIENT

DRUGS (5)
  1. VYVGART [Suspect]
     Active Substance: EFGARTIGIMOD ALFA-FCAB
     Indication: Myasthenia gravis
     Dosage: 419 MG, 1/WEEK
     Route: 042
     Dates: start: 202308
  2. VYVGART [Suspect]
     Active Substance: EFGARTIGIMOD ALFA-FCAB
     Dosage: 10 MG/KG
     Route: 042
     Dates: start: 20230821
  3. DIPHENHYDRAMINE [Concomitant]
     Active Substance: DIPHENHYDRAMINE
     Indication: Product used for unknown indication
     Dosage: SINGLE DOSE VIAL (SDV) (1ML/VL)
  4. Bd posiflush [Concomitant]
     Indication: Product used for unknown indication
     Dosage: 10 ML
  5. SODIUM CHLORIDE [Concomitant]
     Active Substance: SODIUM CHLORIDE
     Indication: Product used for unknown indication
     Dosage: 250 ML/BAG

REACTIONS (6)
  - Gait inability [Unknown]
  - Myasthenia gravis crisis [Unknown]
  - Asthenia [Unknown]
  - Device infusion issue [Unknown]
  - Poor venous access [Unknown]
  - Arthralgia [Unknown]
